FAERS Safety Report 7212159 (Version 3)
Quarter: 2013Q1

REPORT INFORMATION
  Report Type: Spontaneous
  Country: US (occurrence: None)
  Receive Date: 20091127
  Receipt Date: 20130225
  Transmission Date: 20140127
  Serious: Yes (Hospitalization, Other)
  Sender: FDA-Public Use
  Company Number: 2009AP004605

PATIENT
  Age: 16 Year
  Sex: Male

DRUGS (14)
  1. FLUOXETINE HYDROCHLORIDE [Suspect]
     Indication: ANXIETY
     Dosage: 30 MG; PO; 50 MG;QD; 40 MG;QD
     Route: 048
  2. OXCARBAZEPINE [Suspect]
  3. TOPIRAMATE TABLETS [Suspect]
  4. LEVETIRACETAM TABLETS [Suspect]
     Indication: DECREASED APPETITE
     Dosage: 75 MG;QD
  5. PIMOZIDE [Suspect]
     Dosage: 3 MG;QD
  6. ZIPRASIDONE [Suspect]
  7. ARIPIPRAZOLE [Suspect]
     Indication: DECREASED APPETITE
  8. ALPRAZOLAM [Concomitant]
  9. RISPERIDONE [Concomitant]
  10. BENZATROPINE [Concomitant]
  11. HALOPERIDOL [Concomitant]
  12. MIDAZOLAM [Concomitant]
  13. FLUPHENAZINE [Concomitant]
  14. TETRABENAZINE [Concomitant]

REACTIONS (4)
  - Tic [None]
  - Drug interaction [None]
  - Electrocardiogram QT prolonged [None]
  - Condition aggravated [None]
